FAERS Safety Report 5078355-7 (Version None)
Quarter: 2006Q3

REPORT INFORMATION
  Report Type: 
  Country: None (occurrence: None)
  Receive Date: 20060811
  Receipt Date: 20060809
  Transmission Date: 20061208
  Serious: Yes (Other)
  Sender: FDA-Public Use
  Company Number: US-GLAXOSMITHKLINE-A0616027A

PATIENT
  Age: 60 Year
  Sex: Female

DRUGS (3)
  1. LAMICTAL [Suspect]
     Indication: BIPOLAR DISORDER
     Dosage: 200MG PER DAY
     Route: 048
     Dates: start: 20051001, end: 20060707
  2. GEODON [Concomitant]
  3. PRAZOSIN HCL [Concomitant]

REACTIONS (3)
  - HALO VISION [None]
  - NIGHT BLINDNESS [None]
  - VISUAL DISTURBANCE [None]
